FAERS Safety Report 5502500-X (Version None)
Quarter: 2007Q4

REPORT INFORMATION
  Report Type: 
  Country: None (occurrence: None)
  Receive Date: 20071030
  Receipt Date: 20071024
  Transmission Date: 20080405
  Serious: Yes (Hospitalization)
  Sender: FDA-Public Use
  Company Number: GB-PFIZER INC-2007090178

PATIENT
  Age: 47 Year
  Sex: Male

DRUGS (2)
  1. GENOTROPIN [Suspect]
     Indication: HYPOPITUITARISM
     Dosage: DAILY DOSE:.4MG
     Route: 058
  2. LEVOTHYROXINE SODIUM [Concomitant]
     Dosage: DAILY DOSE:150MCG
     Route: 048

REACTIONS (1)
  - PITUITARY TUMOUR BENIGN [None]
